FAERS Safety Report 23562182 (Version 2)
Quarter: 2024Q1

REPORT INFORMATION
  Report Type: Spontaneous
  Country: JP (occurrence: JP)
  Receive Date: 20240226
  Receipt Date: 20240308
  Transmission Date: 20240409
  Serious: Yes (Hospitalization, Other)
  Sender: FDA-Public Use
  Company Number: JP-NOVOPROD-1178703

PATIENT
  Age: 75 Year
  Sex: Female
  Weight: 38 kg

DRUGS (4)
  1. NOVORAPID [Suspect]
     Active Substance: INSULIN ASPART
     Dosage: 300-350UT/DAY
     Route: 058
     Dates: start: 20240127, end: 20240127
  2. NOVORAPID [Suspect]
     Active Substance: INSULIN ASPART
     Indication: Type 2 diabetes mellitus
     Dosage: 14 IU, QD ((6-6-2IU)/DAY)
     Route: 058
     Dates: start: 20190809
  3. INSULIN GLARGINE [Concomitant]
     Active Substance: INSULIN GLARGINE
     Indication: Type 2 diabetes mellitus
     Dosage: 2 IU, QD
     Route: 058
     Dates: start: 20190809, end: 20240127
  4. PREDNISOLONE [Concomitant]
     Active Substance: PREDNISOLONE
     Indication: Autoimmune hepatitis
     Dosage: 5 MG, QD

REACTIONS (6)
  - Suicide attempt [Unknown]
  - Myocardial infarction [Unknown]
  - Cerebral infarction [Unknown]
  - Hypoglycaemia [Recovered/Resolved]
  - Intentional overdose [Unknown]
  - Adjustment disorder [Unknown]

NARRATIVE: CASE EVENT DATE: 20231101
